FAERS Safety Report 7501905-5 (Version None)
Quarter: 2011Q2

REPORT INFORMATION
  Report Type: 
  Country: None (occurrence: None)
  Receive Date: 20110525
  Receipt Date: 20110514
  Transmission Date: 20111010
  Serious: Yes (Other)
  Sender: FDA-Public Use
  Company Number: DE-JNJFOC-20110506339

PATIENT
  Age: 20 Year
  Sex: Female
  Weight: 64 kg

DRUGS (2)
  1. CONCERTA [Suspect]
     Indication: PRODUCT USED FOR UNKNOWN INDICATION
     Route: 048
     Dates: start: 20110514, end: 20110514
  2. BALDRIPARAN [Suspect]
     Indication: PRODUCT USED FOR UNKNOWN INDICATION
     Route: 048
     Dates: start: 20110514, end: 20110514

REACTIONS (6)
  - VOMITING [None]
  - TACHYCARDIA [None]
  - INTENTIONAL DRUG MISUSE [None]
  - HYPERVENTILATION [None]
  - NAUSEA [None]
  - SOMNOLENCE [None]
